FAERS Safety Report 4869915-4 (Version None)
Quarter: 2005Q4

REPORT INFORMATION
  Report Type: 
  Country: None (occurrence: None)
  Receive Date: 20051230
  Receipt Date: 20050912
  Transmission Date: 20060501
  Serious: Yes (Hospitalization, Disabling, Other)
  Sender: FDA-Public Use
  Company Number: US-MERCK-0509USA01552

PATIENT
  Age: 55 Year
  Sex: Male
  Weight: 80 kg

DRUGS (18)
  1. VIOXX [Suspect]
     Indication: OSTEOARTHRITIS
     Route: 048
     Dates: start: 19991003, end: 20020829
  2. PREVACID [Concomitant]
     Route: 065
  3. HYDROCODONE BITARTRATE + ACETAMINOPHEN [Concomitant]
     Route: 065
  4. PROZAC [Concomitant]
     Route: 065
     Dates: start: 19991201, end: 20010501
  5. TEMAZEPAM [Concomitant]
     Route: 065
  6. SONATA [Concomitant]
     Route: 065
  7. TOPROL-XL [Concomitant]
     Route: 065
  8. XANAX [Concomitant]
     Route: 065
     Dates: start: 20000401
  9. METRONIDAZOLE [Concomitant]
     Route: 065
  10. NITRO [Concomitant]
     Route: 065
  11. OXYCODONE [Concomitant]
     Route: 065
  12. FUROSEMIDE [Concomitant]
     Route: 065
  13. PRILOSEC [Concomitant]
     Route: 048
  14. LORAZEPAM [Concomitant]
     Route: 065
  15. ZOLOFT [Concomitant]
     Route: 065
     Dates: start: 20010601
  16. ZYPREXA [Concomitant]
     Route: 065
     Dates: start: 20010901, end: 20030801
  17. ANEMAGEN [Concomitant]
     Route: 065
  18. POTASSIUM CHLORIDE [Concomitant]
     Route: 065

REACTIONS (19)
  - ABDOMINAL HERNIA [None]
  - ABDOMINAL PAIN [None]
  - ACUTE PULMONARY OEDEMA [None]
  - ADVERSE EVENT [None]
  - ASTHENIA [None]
  - BACK INJURY [None]
  - CARDIAC DISORDER [None]
  - CARDIAC FAILURE CONGESTIVE [None]
  - CAROTID ARTERY STENOSIS [None]
  - CEREBROVASCULAR ACCIDENT [None]
  - CHEST PAIN [None]
  - DEPRESSION SUICIDAL [None]
  - DIZZINESS [None]
  - DYSPNOEA [None]
  - GASTROOESOPHAGEAL REFLUX DISEASE [None]
  - HYPERCHOLESTEROLAEMIA [None]
  - MYOCARDIAL INFARCTION [None]
  - ROAD TRAFFIC ACCIDENT [None]
  - TRANSIENT ISCHAEMIC ATTACK [None]
